FAERS Safety Report 4591755-4 (Version None)
Quarter: 2005Q1

REPORT INFORMATION
  Report Type: 
  Country: None (occurrence: None)
  Receive Date: 20050218
  Receipt Date: 20050211
  Transmission Date: 20050727
  Serious: Yes (Hospitalization, Other)
  Sender: FDA-Public Use
  Company Number: KII-2005-0015157

PATIENT
  Sex: Female

DRUGS (4)
  1. MORPHINE SULFATE [Suspect]
     Dosage: SEE TEXT
  2. POTASSIUM ACETATE [Suspect]
     Dosage: SEE TEXT
  3. I.V. SOLUTIONS() [Suspect]
     Dosage: SEE TEXT
  4. COUMADIN [Concomitant]

REACTIONS (4)
  - AGITATION [None]
  - ELECTROCARDIOGRAM ABNORMAL [None]
  - HYPERKALAEMIA [None]
  - PULMONARY OEDEMA [None]
